FAERS Safety Report 6175017-X (Version None)
Quarter: 2009Q2

REPORT INFORMATION
  Report Type: 
  Country: None (occurrence: None)
  Receive Date: 20090430
  Receipt Date: 20090422
  Transmission Date: 20091009
  Serious: Yes (Other)
  Sender: FDA-Public Use
  Company Number: PHEH2008US09068

PATIENT
  Sex: Female

DRUGS (13)
  1. AREDIA [Suspect]
  2. ZOMETA [Suspect]
     Indication: HYPERCALCAEMIA
     Dosage: MONTHLY
     Route: 042
  3. METFORMIN HCL [Concomitant]
  4. LISINOPRIL [Suspect]
  5. NABUMETONE [Concomitant]
  6. HYDROCHLOROTHIAZIDE [Concomitant]
  7. KLOR-CON [Concomitant]
  8. GEMFIBROZIL [Concomitant]
  9. MULTI-VITAMINS [Concomitant]
  10. CALCIUM [Concomitant]
  11. PRILOSEC [Concomitant]
  12. VICODIN [Concomitant]
  13. AROMASIN [Concomitant]
     Dosage: 25MG DAILY

REACTIONS (7)
  - ANHEDONIA [None]
  - ANKLE FRACTURE [None]
  - ANXIETY [None]
  - DISABILITY [None]
  - INJURY [None]
  - OSTEONECROSIS [None]
  - PAIN [None]
